FAERS Safety Report 9552312 (Version 1)
Quarter: 2013Q3

REPORT INFORMATION
  Report Type: Spontaneous
  Country: US (occurrence: None)
  Receive Date: 20130724
  Receipt Date: 20130724
  Transmission Date: 20140515
  Serious: Yes (Other)
  Sender: FDA-Public Use
  Company Number: PHEH2012US014242

PATIENT
  Age: 67 Year
  Sex: Female
  Weight: 86.2 kg

DRUGS (1)
  1. RECLAST (ZOLEDRONATE) SOLUTION FOR INJECTION [Suspect]
     Dosage: UNK, INTRAVENOUS
     Route: 042

REACTIONS (6)
  - Renal failure acute [None]
  - Headache [None]
  - Vomiting [None]
  - Musculoskeletal stiffness [None]
  - Myalgia [None]
  - Chromaturia [None]
